FAERS Safety Report 25629589 (Version 2)
Quarter: 2025Q3

REPORT INFORMATION
  Report Type: Spontaneous
  Country: US (occurrence: US)
  Receive Date: 20250731
  Receipt Date: 20250818
  Transmission Date: 20251020
  Serious: No
  Sender: ABBVIE
  Company Number: US-ABBVIE-6387986

PATIENT
  Age: 47 Year
  Sex: Female
  Weight: 71 kg

DRUGS (5)
  1. LINZESS [Suspect]
     Active Substance: LINACLOTIDE
     Indication: Irritable bowel syndrome
     Dosage: FORM STRENGTH: 145 MICROGRAM
     Route: 048
     Dates: start: 20250704, end: 20250707
  2. LINZESS [Suspect]
     Active Substance: LINACLOTIDE
     Indication: Irritable bowel syndrome
     Dosage: FORM STRENGTH: 290 MICROGRAM
     Route: 048
     Dates: start: 202507
  3. LINZESS [Suspect]
     Active Substance: LINACLOTIDE
     Indication: Irritable bowel syndrome
     Dosage: FORM STRENGTH: 72 MICROGRAM
     Route: 048
     Dates: start: 20250630, end: 20250703
  4. LINZESS [Suspect]
     Active Substance: LINACLOTIDE
     Indication: Irritable bowel syndrome
     Dosage: FORM STRENGTH: 290 MICROGRAM?JUL 2025
     Route: 048
     Dates: start: 20250708
  5. MIRALAX [Concomitant]
     Active Substance: POLYETHYLENE GLYCOL 3350
     Indication: Product used for unknown indication

REACTIONS (5)
  - Haemorrhage [Unknown]
  - Drug ineffective [Not Recovered/Not Resolved]
  - Diarrhoea [Not Recovered/Not Resolved]
  - Flatulence [Unknown]
  - Constipation [Not Recovered/Not Resolved]

NARRATIVE: CASE EVENT DATE: 20250101
